FAERS Safety Report 6211621-8 (Version None)
Quarter: 2009Q2

REPORT INFORMATION
  Report Type: 
  Country: None (occurrence: None)
  Receive Date: 20090522
  Receipt Date: 20090420
  Transmission Date: 20091009
  Serious: No
  Sender: FDA-Public Use
  Company Number: 8044408

PATIENT
  Age: 24 Year
  Sex: Male
  Weight: 61.2 kg

DRUGS (2)
  1. CIMZIA [Suspect]
     Indication: CROHN'S DISEASE
     Dates: start: 20090224
  2. PERCOCET [Concomitant]

REACTIONS (2)
  - BLISTER [None]
  - RASH [None]
